FAERS Safety Report 8537715-X (Version None)
Quarter: 2012Q3

REPORT INFORMATION
  Report Type: 
  Country: None (occurrence: None)
  Receive Date: 20120725
  Receipt Date: 20120723
  Transmission Date: 20120928
  Serious: Yes (Other)
  Sender: FDA-Public Use
  Company Number: PHHY2012GB063305

PATIENT
  Age: 43 Year
  Sex: Female
  Weight: 73.482 kg

DRUGS (2)
  1. METRONIDAZOLE [Suspect]
     Dates: start: 20120711
  2. CETIRIZINE HCL [Concomitant]

REACTIONS (2)
  - DRUG ERUPTION [None]
  - RASH [None]
